FAERS Safety Report 14892287 (Version 1)
Quarter: 2018Q2

REPORT INFORMATION
  Report Type: Spontaneous
  Country: US (occurrence: US)
  Receive Date: 20180514
  Receipt Date: 20180514
  Transmission Date: 20180711
  Serious: No
  Sender: FDA-Public Use
  Company Number: US-UNITED THERAPEUTICS-UNT-2018-000660

PATIENT
  Sex: Male

DRUGS (1)
  1. REMODULIN [Suspect]
     Active Substance: TREPROSTINIL
     Indication: PULMONARY ARTERIAL HYPERTENSION
     Dosage: 0.0415 ?G/KG, CONTINUING
     Route: 058
     Dates: start: 20170808

REACTIONS (4)
  - Infusion site induration [Unknown]
  - Infusion site discolouration [Unknown]
  - Dizziness [Unknown]
  - Infusion site pain [Unknown]
